FAERS Safety Report 5341842-8 (Version None)
Quarter: 2007Q2

REPORT INFORMATION
  Report Type: 
  Country: None (occurrence: None)
  Receive Date: 20070601
  Receipt Date: 20070525
  Transmission Date: 20071010
  Serious: Yes (Hospitalization)
  Sender: FDA-Public Use
  Company Number: US-ELI_LILLY_AND_COMPANY-US200703002264

PATIENT
  Age: 57 Year
  Sex: Male

DRUGS (7)
  1. BYETTA [Suspect]
     Indication: DIABETES MELLITUS NON-INSULIN-DEPENDENT
     Dosage: 5 U, 2/D
     Route: 058
     Dates: start: 20060601, end: 20060701
  2. BYETTA [Suspect]
     Dosage: 10 UG, 2/D
     Route: 058
     Dates: start: 20060702, end: 20070517
  3. METFORMIN HCL [Concomitant]
     Indication: DIABETES MELLITUS
     Dosage: UNK, UNKNOWN
     Route: 048
     Dates: start: 20040101
  4. GLIPIZIDE [Concomitant]
     Dosage: UNK, UNKNOWN
  5. NEXIUM [Concomitant]
     Indication: GASTROOESOPHAGEAL REFLUX DISEASE
     Dosage: UNK, UNKNOWN
     Route: 048
     Dates: start: 20040101
  6. WELLBUTRIN [Concomitant]
     Indication: DEPRESSION
     Dosage: UNK, UNKNOWN
     Route: 048
     Dates: start: 20020101
  7. LISINOPRIL [Concomitant]
     Indication: BLOOD PRESSURE
     Dosage: UNK, UNKNOWN
     Route: 048
     Dates: start: 20010101

REACTIONS (2)
  - CHOLECYSTITIS [None]
  - CHOLELITHIASIS [None]
